FAERS Safety Report 9404811 (Version 1)
Quarter: 2013Q3

REPORT INFORMATION
  Report Type: Spontaneous
  Country: US (occurrence: None)
  Receive Date: 20130716
  Receipt Date: 20130716
  Transmission Date: 20140515
  Serious: Yes (Other)
  Sender: FDA-Public Use
  Company Number: None

PATIENT
  Age: 56 Year
  Sex: Male

DRUGS (2)
  1. SEREVENT DISKUS [Suspect]
     Indication: ASTHMA
     Dosage: 50MCG, 1 PUFF, 2X, BY MOUTH
     Route: 048
     Dates: start: 20130709, end: 20130709
  2. PURBUTEROL ACETATE- SALINE- [Concomitant]

REACTIONS (20)
  - Swelling face [None]
  - Swelling face [None]
  - Swollen tongue [None]
  - Photosensitivity reaction [None]
  - Fatigue [None]
  - Asthenia [None]
  - Headache [None]
  - Bronchitis [None]
  - Chest pain [None]
  - Dyspnoea [None]
  - Cough [None]
  - Oropharyngeal pain [None]
  - Rhinorrhoea [None]
  - Insomnia [None]
  - Nausea [None]
  - Pain [None]
  - Agitation [None]
  - Decreased appetite [None]
  - Heart rate increased [None]
  - Pollakiuria [None]
